FAERS Safety Report 9408125 (Version 2)
Quarter: 2013Q3

REPORT INFORMATION
  Report Type: Spontaneous
  Country: None (occurrence: None)
  Receive Date: 20130716
  Receipt Date: 20130726
  Transmission Date: 20140515
  Serious: Yes (Hospitalization)
  Sender: FDA-Public Use
  Company Number: 2013S1001459

PATIENT
  Age: 62 Year
  Sex: Male

DRUGS (7)
  1. LIVALO [Suspect]
     Indication: HYPERLIPIDAEMIA
     Route: 048
     Dates: start: 20130330
  2. ASPIRIN [Concomitant]
  3. CLOPIDOGREL [Concomitant]
  4. NEBIVOLOL [Concomitant]
  5. TELMISARTAN [Concomitant]
  6. CILOSTAZOL + GINKGO [Concomitant]
  7. JANUMET [Concomitant]

REACTIONS (5)
  - Gastroenteritis [None]
  - Atelectasis [None]
  - Headache [None]
  - Dyspnoea [None]
  - Hyperhidrosis [None]
